FAERS Safety Report 12280302 (Version 2)
Quarter: 2016Q3

REPORT INFORMATION
  Report Type: Spontaneous
  Country: US (occurrence: US)
  Receive Date: 20160419
  Receipt Date: 20160711
  Transmission Date: 20161109
  Serious: No
  Sender: FDA-Public Use
  Company Number: US-009507513-1604USA009926

PATIENT
  Age: 73 Year
  Sex: Female
  Weight: 99 kg

DRUGS (3)
  1. EFFEXOR [Concomitant]
     Active Substance: VENLAFAXINE HYDROCHLORIDE
  2. INVANZ [Suspect]
     Active Substance: ERTAPENEM SODIUM
     Indication: INFECTED BITE
     Dosage: 1400 MG DAILY
     Route: 042
     Dates: start: 20160407, end: 20160414
  3. VANCOMYCIN [Suspect]
     Active Substance: VANCOMYCIN
     Indication: INFECTED BITE
     Dosage: 1400 MG DAILY
     Route: 042
     Dates: start: 20160407, end: 20160414

REACTIONS (3)
  - Rash generalised [Recovered/Resolved]
  - Peripheral swelling [Not Recovered/Not Resolved]
  - Pain [Recovered/Resolved]

NARRATIVE: CASE EVENT DATE: 20160408
